FAERS Safety Report 8501570-4 (Version None)
Quarter: 2012Q3

REPORT INFORMATION
  Report Type: 
  Country: None (occurrence: None)
  Receive Date: 20120710
  Receipt Date: 20120625
  Transmission Date: 20120928
  Serious: Yes (Other)
  Sender: FDA-Public Use
  Company Number: ES-WATSON-2012-11599

PATIENT
  Age: 42 Year
  Sex: Male

DRUGS (1)
  1. AMPICILLIN [Suspect]
     Dosage: 1875 MG, SINGLE
     Route: 048

REACTIONS (3)
  - RASH MACULO-PAPULAR [None]
  - TYPE IV HYPERSENSITIVITY REACTION [None]
  - RASH PRURITIC [None]
